FAERS Safety Report 20834198 (Version 5)
Quarter: 2022Q2

REPORT INFORMATION
  Report Type: Spontaneous
  Country: TR (occurrence: TR)
  Receive Date: 20220516
  Receipt Date: 20220620
  Transmission Date: 20220720
  Serious: Yes (Death, Other)
  Sender: FDA-Public Use
  Company Number: TR-PFIZER INC-202200698663

PATIENT

DRUGS (2)
  1. VYNDAQEL [Suspect]
     Active Substance: TAFAMIDIS MEGLUMINE
     Dosage: FIRST REGIMEN AT 1-2 TABLETS ON THE FIRST DAY
  2. VYNDAQEL [Suspect]
     Active Substance: TAFAMIDIS MEGLUMINE
     Dosage: 4X1 (TOTAL DAILY DOSE: 80 MG)

REACTIONS (2)
  - Death [Fatal]
  - Off label use [Unknown]
